FAERS Safety Report 24722649 (Version 1)
Quarter: 2024Q4

REPORT INFORMATION
  Report Type: Spontaneous
  Country: JP (occurrence: JP)
  Receive Date: 20241211
  Receipt Date: 20241211
  Transmission Date: 20250115
  Serious: Yes (Other)
  Sender: ALEXION PHARMACEUTICALS
  Company Number: JP-ASTRAZENECA-240139123_064320_P_1

PATIENT
  Age: 87 Year

DRUGS (6)
  1. ANDEXXA [Suspect]
     Active Substance: ANDEXANET ALFA
     Indication: Haemorrhage
     Dosage: 800 MG IV AT 30 MG/MIN FOLLOWED BY 960 MG IV AT 8 MG/MIN FOR 2 H
  2. ANDEXXA [Suspect]
     Active Substance: ANDEXANET ALFA
     Dosage: 800 MG IV AT 30 MG/MIN FOLLOWED BY 960 MG IV AT 8 MG/MIN FOR 2 H
     Route: 042
  3. ANDEXXA [Suspect]
     Active Substance: ANDEXANET ALFA
     Dosage: 800 MG IV AT 30 MG/MIN FOLLOWED BY 960 MG IV AT 8 MG/MIN FOR 2 H
  4. ANDEXXA [Suspect]
     Active Substance: ANDEXANET ALFA
     Dosage: 800 MG IV AT 30 MG/MIN FOLLOWED BY 960 MG IV AT 8 MG/MIN FOR 2 H
     Route: 042
  5. ANTICOAGULANT CITRATE DEXTROSE SOLUTION (ACD) NOS [Concomitant]
     Active Substance: CITRIC ACID MONOHYDRATE\DEXTROSE\SODIUM CITRATE
     Dosage: DOSE UNKNOWN
     Route: 048
  6. ANTICOAGULANT CITRATE DEXTROSE SOLUTION (ACD) NOS [Concomitant]
     Active Substance: CITRIC ACID MONOHYDRATE\DEXTROSE\SODIUM CITRATE
     Dosage: DOSE UNKNOWN

REACTIONS (1)
  - Haemorrhagic infarction [Unknown]
